FAERS Safety Report 9061605 (Version 1)
Quarter: 2013Q1

REPORT INFORMATION
  Report Type: Spontaneous
  Country: US (occurrence: None)
  Receive Date: 20130122
  Receipt Date: 20130122
  Transmission Date: 20140127
  Serious: Yes (Death)
  Sender: FDA-Public Use
  Company Number: 1553148

PATIENT
  Age: 23 Year
  Sex: Male

DRUGS (4)
  1. PROMETHAZINE HYDROCHLORIDE [Suspect]
     Indication: PRODUCT USED FOR UNKNOWN INDICATION
  2. METHADONE [Suspect]
  3. COCAINE [Suspect]
  4. CLONAZEPAM [Suspect]

REACTIONS (3)
  - Respiratory arrest [None]
  - Cardiac arrest [None]
  - Toxicity to various agents [None]
